FAERS Safety Report 18295847 (Version 1)
Quarter: 2020Q3

REPORT INFORMATION
  Report Type: Spontaneous
  Country: US (occurrence: US)
  Receive Date: 20200922
  Receipt Date: 20200922
  Transmission Date: 20201103
  Serious: No
  Sender: FDA-Public Use
  Company Number: US-AMARIN PHARMA, INC.-2020AMR000271

PATIENT
  Age: 80 Year
  Sex: Female
  Weight: 65.83 kg

DRUGS (17)
  1. GOJI JUICE [Concomitant]
     Indication: NUTRITIONAL SUPPLEMENTATION
     Dosage: 1 OUNCE
     Route: 048
  2. METOPROLOL SUCCINATE. [Suspect]
     Active Substance: METOPROLOL SUCCINATE
     Indication: HYPERTENSION
     Route: 048
     Dates: start: 2015
  3. ELIQUIS [Concomitant]
     Active Substance: APIXABAN
     Indication: ATRIAL FIBRILLATION
     Route: 048
     Dates: start: 2015
  4. COLCRYS [Concomitant]
     Active Substance: COLCHICINE
     Indication: PROPHYLAXIS
     Route: 048
     Dates: start: 202004
  5. NONI JUICE [Concomitant]
     Active Substance: NONI FRUIT JUICE
     Indication: NUTRITIONAL SUPPLEMENTATION
  6. TRADJENTA [Concomitant]
     Active Substance: LINAGLIPTIN
     Indication: TYPE 2 DIABETES MELLITUS
     Route: 048
     Dates: start: 2018
  7. REPATHA [Concomitant]
     Active Substance: EVOLOCUMAB
     Indication: BLOOD CHOLESTEROL ABNORMAL
     Dates: start: 2018
  8. ALLOPURINOL. [Concomitant]
     Active Substance: ALLOPURINOL
     Indication: PROPHYLAXIS
     Route: 048
  9. SILVER SHIELD [Concomitant]
     Indication: NUTRITIONAL SUPPLEMENTATION
     Dosage: 1 OUNCE
     Route: 048
  10. PREDNISONE. [Suspect]
     Active Substance: PREDNISONE
     Indication: GOUT
  11. CHLOROPHYLL [Concomitant]
     Indication: NUTRITIONAL SUPPLEMENTATION
  12. VASCEPA [Suspect]
     Active Substance: ICOSAPENT ETHYL
     Indication: PRODUCT USED FOR UNKNOWN INDICATION
     Route: 048
     Dates: start: 2018
  13. EZETIMIBE. [Concomitant]
     Active Substance: EZETIMIBE
     Indication: BLOOD CHOLESTEROL ABNORMAL
     Route: 048
  14. ELDERBERRY [Concomitant]
     Active Substance: HERBALS
     Indication: NUTRITIONAL SUPPLEMENTATION
     Dosage: TWO DAILY
     Route: 048
  15. DIGITEK [Concomitant]
     Active Substance: DIGOXIN
     Indication: CARDIAC DISORDER
  16. STOMACH COMFORT [Concomitant]
     Indication: DYSPEPSIA
     Route: 048
  17. HSNW [Concomitant]
     Indication: NUTRITIONAL SUPPLEMENTATION

REACTIONS (2)
  - Gout [Not Recovered/Not Resolved]
  - Alopecia [Not Recovered/Not Resolved]

NARRATIVE: CASE EVENT DATE: 201908
